FAERS Safety Report 6619451-X (Version None)
Quarter: 2010Q1

REPORT INFORMATION
  Report Type: 
  Country: None (occurrence: None)
  Receive Date: 20100304
  Receipt Date: 20100218
  Transmission Date: 20100710
  Serious: Yes (Other)
  Sender: FDA-Public Use
  Company Number: 2009SP028628

PATIENT
  Age: 20 Year
  Sex: Female
  Weight: 58.9676 kg

DRUGS (1)
  1. IMPLANON [Suspect]
     Indication: DRUG USE FOR UNKNOWN INDICATION
     Dosage: 1 DF
     Dates: start: 20090901

REACTIONS (6)
  - ABDOMINAL PAIN UPPER [None]
  - DRY SKIN [None]
  - HAEMATOCHEZIA [None]
  - MENORRHAGIA [None]
  - RASH PRURITIC [None]
  - SCAR [None]
